FAERS Safety Report 24728168 (Version 1)
Quarter: 2024Q4

REPORT INFORMATION
  Report Type: Report from Study
  Country: BR (occurrence: BR)
  Receive Date: 20241212
  Receipt Date: 20241212
  Transmission Date: 20250114
  Serious: Yes (Hospitalization, Other)
  Sender: ALEXION PHARMACEUTICALS
  Company Number: BR-AstraZeneca-CH-00762428A

PATIENT
  Weight: 70 kg

DRUGS (8)
  1. TEZEPELUMAB [Suspect]
     Active Substance: TEZEPELUMAB
     Indication: Asthma
     Dosage: 210 MILLIGRAM, Q4W
  2. TEZEPELUMAB [Suspect]
     Active Substance: TEZEPELUMAB
     Dosage: 210 MILLIGRAM, Q4W
     Route: 058
  3. TEZEPELUMAB [Suspect]
     Active Substance: TEZEPELUMAB
     Dosage: 210 MILLIGRAM, Q4W
  4. TEZEPELUMAB [Suspect]
     Active Substance: TEZEPELUMAB
     Dosage: 210 MILLIGRAM, Q4W
     Route: 058
  5. RIVOTRIL [Concomitant]
     Active Substance: CLONAZEPAM
     Dosage: 2 MILLIGRAM
  6. RIVOTRIL [Concomitant]
     Active Substance: CLONAZEPAM
     Dosage: 2 MILLIGRAM
     Route: 048
  7. RIVOTRIL [Concomitant]
     Active Substance: CLONAZEPAM
     Dosage: 2 MILLIGRAM
  8. RIVOTRIL [Concomitant]
     Active Substance: CLONAZEPAM
     Dosage: 2 MILLIGRAM
     Route: 048

REACTIONS (7)
  - Blood potassium decreased [Recovering/Resolving]
  - Syncope [Unknown]
  - Off label use [Unknown]
  - Inappropriate schedule of product administration [Not Recovered/Not Resolved]
  - Spondylitis [Unknown]
  - Blood pressure decreased [Not Recovered/Not Resolved]
  - Medication error [Unknown]
